FAERS Safety Report 23729107 (Version 2)
Quarter: 2024Q3

REPORT INFORMATION
  Report Type: Spontaneous
  Country: CO (occurrence: CO)
  Receive Date: 20240410
  Receipt Date: 20240731
  Transmission Date: 20241016
  Serious: No
  Sender: MENARINI
  Company Number: CO-MEN-2024-094204

PATIENT
  Age: 83 Year
  Sex: Male

DRUGS (7)
  1. RANOLAZINE [Suspect]
     Active Substance: RANOLAZINE
     Indication: Chronic coronary syndrome
     Dosage: 1000 MG, QD
     Route: 048
     Dates: start: 2021, end: 20240215
  2. JARDIANCE [Concomitant]
     Active Substance: EMPAGLIFLOZIN
     Indication: Glucose tolerance impaired
     Route: 048
  3. VASTAREL [Concomitant]
     Active Substance: TRIMETAZIDINE DIHYDROCHLORIDE
     Indication: Chronic coronary syndrome
     Dosage: 70 MG, QD
     Route: 048
  4. CLOPIDOGREL [Concomitant]
     Active Substance: CLOPIDOGREL BISULFATE
     Indication: Coronary artery disease
     Route: 048
  5. ROSUVASTATIN [Concomitant]
     Active Substance: ROSUVASTATIN\ROSUVASTATIN CALCIUM
     Indication: Hypercholesterolaemia
     Route: 048
  6. BISOPROLOL FUMARATE [Concomitant]
     Active Substance: BISOPROLOL FUMARATE
     Indication: Coronary artery disease
     Route: 048
  7. PANTOPRAZOLE [Concomitant]
     Active Substance: PANTOPRAZOLE
     Indication: Gastrointestinal disorder prophylaxis
     Route: 048

REACTIONS (1)
  - Hypotension [Unknown]
